FAERS Safety Report 4517142-2 (Version None)
Quarter: 2004Q4

REPORT INFORMATION
  Report Type: 
  Country: None (occurrence: None)
  Receive Date: 20041130
  Receipt Date: 20041115
  Transmission Date: 20050328
  Serious: Yes (Other)
  Sender: FDA-Public Use
  Company Number: US_0411108042

PATIENT
  Age: 71 Year
  Sex: Male

DRUGS (5)
  1. GEMCITABINE HYDROCHLORIDE-IV (GEMCITABINE) [Suspect]
     Indication: LUNG SQUAMOUS CELL CARCINOMA STAGE IV
     Dosage: 1000 MG/M2 OTHER
     Route: 050
  2. CISPLATIN [Concomitant]
  3. ONDANSETRON [Concomitant]
  4. PREDNISOLONE [Concomitant]
  5. METOCLOPRAMIDE [Concomitant]

REACTIONS (4)
  - APHASIA [None]
  - CONFUSIONAL STATE [None]
  - MYOCLONIC EPILEPSY [None]
  - NEUROTOXICITY [None]
